APPROVED DRUG PRODUCT: JUNIOR STRENGTH MOTRIN
Active Ingredient: IBUPROFEN
Strength: 100MG
Dosage Form/Route: TABLET, CHEWABLE;ORAL
Application: N020601 | Product #003
Applicant: KENVUE BRANDS LLC
Approved: Nov 15, 1996 | RLD: Yes | RS: No | Type: DISCN